FAERS Safety Report 4519756-2 (Version None)
Quarter: 2004Q4

REPORT INFORMATION
  Report Type: 
  Country: None (occurrence: None)
  Receive Date: 20041207
  Receipt Date: 20041124
  Transmission Date: 20050328
  Serious: Yes (Other)
  Sender: FDA-Public Use
  Company Number: PHBS2004BR15980

PATIENT
  Age: 50 Year
  Sex: Female

DRUGS (2)
  1. TRILEPTAL [Suspect]
     Indication: AFFECTIVE DISORDER
     Dosage: 600 MG, QHS
     Route: 048
     Dates: start: 20040301
  2. CITALOPRAM [Concomitant]
     Indication: DEPRESSION
     Dosage: 10 MG, QD

REACTIONS (3)
  - COUGH [None]
  - DYSLIPIDAEMIA [None]
  - GASTRITIS [None]
